FAERS Safety Report 5254340-7 (Version None)
Quarter: 2007Q1

REPORT INFORMATION
  Report Type: 
  Country: None (occurrence: None)
  Receive Date: 20070302
  Receipt Date: 20070223
  Transmission Date: 20070707
  Serious: Yes (Other)
  Sender: FDA-Public Use
  Company Number: US-PURDUE-USA_2006_0026055

PATIENT
  Age: 51 Year
  Sex: Male

DRUGS (2)
  1. PALLADONE [Suspect]
     Indication: NEURALGIA
     Dosage: 12 MG, SINGLE
     Dates: start: 20061226, end: 20061226
  2. PALLADONE [Suspect]
     Dosage: 12 MG, DAILY
     Route: 048
     Dates: start: 20050701, end: 20050701

REACTIONS (7)
  - ANGIOPATHY [None]
  - BURNING SENSATION [None]
  - DYSPNOEA [None]
  - FEELING HOT [None]
  - HYPERAESTHESIA [None]
  - MUSCULOSKELETAL STIFFNESS [None]
  - PAIN OF SKIN [None]
